FAERS Safety Report 17830395 (Version 2)
Quarter: 2020Q2

REPORT INFORMATION
  Report Type: Spontaneous
  Country: US (occurrence: US)
  Receive Date: 20200527
  Receipt Date: 20200623
  Transmission Date: 20200714
  Serious: Yes (Hospitalization)
  Sender: FDA-Public Use
  Company Number: US-ELI_LILLY_AND_COMPANY-US202005007590

PATIENT
  Sex: Female

DRUGS (1)
  1. TALTZ [Suspect]
     Active Substance: IXEKIZUMAB
     Indication: PSORIASIS
     Dosage: 80 MG, UNKNOWN
     Route: 065
     Dates: start: 20200101, end: 20200509

REACTIONS (4)
  - Anaphylactic reaction [Recovered/Resolved]
  - Injection site erythema [Unknown]
  - Inappropriate schedule of product administration [Unknown]
  - Injection site swelling [Unknown]

NARRATIVE: CASE EVENT DATE: 202005
